FAERS Safety Report 13598572 (Version 1)
Quarter: 2017Q2

REPORT INFORMATION
  Report Type: Spontaneous
  Country: US (occurrence: US)
  Receive Date: 20170531
  Receipt Date: 20170531
  Transmission Date: 20170830
  Serious: No
  Sender: FDA-Public Use
  Company Number: US-SA-2017SA041074

PATIENT
  Age: 63 Year
  Sex: Male
  Weight: 88.4 kg

DRUGS (11)
  1. SOLIQUA 100/33 [Suspect]
     Active Substance: INSULIN GLARGINE\LIXISENATIDE
     Indication: TYPE 2 DIABETES MELLITUS
     Dosage: DOSE:25 UNIT(S)
     Route: 065
     Dates: start: 20170315
  2. TOUJEO [Concomitant]
     Active Substance: INSULIN GLARGINE
     Dates: start: 20170308
  3. SOLOSTAR [Concomitant]
     Active Substance: DEVICE
     Dates: start: 2017, end: 2017
  4. TRULICITY [Concomitant]
     Active Substance: DULAGLUTIDE
     Dates: start: 2017, end: 2017
  5. TOUJEO [Concomitant]
     Active Substance: INSULIN GLARGINE
     Dates: start: 2017, end: 2017
  6. SOLOSTAR [Concomitant]
     Active Substance: DEVICE
     Dates: start: 20170308
  7. TOUJEO [Concomitant]
     Active Substance: INSULIN GLARGINE
     Dates: start: 2016, end: 2017
  8. SOLOSTAR [Concomitant]
     Active Substance: DEVICE
     Dates: start: 2016, end: 2017
  9. QUINAPRIL. [Concomitant]
     Active Substance: QUINAPRIL
     Indication: HYPERTENSION
  10. PROBENECID. [Concomitant]
     Active Substance: PROBENECID
     Indication: BLOOD URIC ACID INCREASED
  11. SOLIQUA 100/33 [Suspect]
     Active Substance: INSULIN GLARGINE\LIXISENATIDE
     Indication: TYPE 2 DIABETES MELLITUS
     Dosage: DOSE:48 UNIT(S)
     Route: 065
     Dates: start: 20170302, end: 20170306

REACTIONS (1)
  - Constipation [Recovered/Resolved]

NARRATIVE: CASE EVENT DATE: 20170306
